FAERS Safety Report 10635180 (Version 1)
Quarter: 2014Q4

REPORT INFORMATION
  Report Type: Report from Study
  Country: CN (occurrence: CN)
  Receive Date: 20141205
  Receipt Date: 20141205
  Transmission Date: 20150529
  Serious: Yes (Hospitalization, Other)
  Sender: FDA-Public Use
  Company Number: CN-BAXTER-2014BAX071030

PATIENT
  Sex: Female
  Weight: 73 kg

DRUGS (6)
  1. CARVEDILOL. [Concomitant]
     Active Substance: CARVEDILOL
     Indication: HYPERTENSION
     Route: 048
  2. IMDUR [Concomitant]
     Active Substance: ISOSORBIDE MONONITRATE
     Indication: CONGESTIVE CARDIOMYOPATHY
     Route: 048
  3. PERITONEAL DIALYSIS SOLUTION (LACTATE- G2.5%) [Suspect]
     Active Substance: CALCIUM CHLORIDE\DEXTROSE\MAGNESIUM CHLORIDE\SODIUM CHLORIDE\SODIUM LACTATE
     Indication: PERITONEAL DIALYSIS
     Route: 033
  4. UBIDECARENONE [Concomitant]
     Active Substance: UBIDECARENONE
     Indication: CONGESTIVE CARDIOMYOPATHY
     Route: 048
  5. DIOVAN [Concomitant]
     Active Substance: VALSARTAN
     Indication: HYPERTENSION
     Route: 048
  6. VASOREL [Concomitant]
     Indication: CONGESTIVE CARDIOMYOPATHY
     Route: 048

REACTIONS (4)
  - Fluid overload [Recovered/Resolved]
  - Dehydration [Unknown]
  - Pericardial effusion [Unknown]
  - Anaemia [Unknown]
